FAERS Safety Report 18330057 (Version 1)
Quarter: 2020Q3

REPORT INFORMATION
  Report Type: Spontaneous
  Country: US (occurrence: US)
  Receive Date: 20200930
  Receipt Date: 20200930
  Transmission Date: 20201103
  Serious: No
  Sender: FDA-Public Use
  Company Number: US-MACLEODS PHARMACEUTICALS US LTD-MAC2020028202

PATIENT

DRUGS (2)
  1. ZYRTEC [Concomitant]
     Active Substance: CETIRIZINE HYDROCHLORIDE
     Indication: HYPERSENSITIVITY
     Dosage: UNK, QD, EVERY MORNING
     Route: 065
  2. FAMCICLOVIR 250 MG [Suspect]
     Active Substance: FAMCICLOVIR
     Indication: GENITAL HERPES
     Dosage: 250 MILLIGRAM, BID, APOTEX (FAMCICLOVIR), NDC #60505?3246?03
     Route: 065

REACTIONS (1)
  - Pruritus [Unknown]
